FAERS Safety Report 16885967 (Version 1)
Quarter: 2019Q4

REPORT INFORMATION
  Report Type: Spontaneous
  Country: US (occurrence: US)
  Receive Date: 20191004
  Receipt Date: 20191004
  Transmission Date: 20200122
  Serious: Yes (Hospitalization)
  Sender: FDA-Public Use
  Company Number: None

PATIENT
  Age: 37 Year
  Sex: Female
  Weight: 97.65 kg

DRUGS (3)
  1. NOVOLOG [Concomitant]
     Active Substance: INSULIN ASPART
  2. TRULICITY [Concomitant]
     Active Substance: DULAGLUTIDE
  3. LEVEMIR [Suspect]
     Active Substance: INSULIN DETEMIR
     Indication: TYPE 2 DIABETES MELLITUS
     Dates: start: 20190620, end: 20190705

REACTIONS (21)
  - Nausea [None]
  - Palpitations [None]
  - Product communication issue [None]
  - Muscle spasms [None]
  - Neck pain [None]
  - Photosensitivity reaction [None]
  - Asthenia [None]
  - Dizziness [None]
  - Dyspnoea [None]
  - Tremor [None]
  - Chest pain [None]
  - Headache [None]
  - Back pain [None]
  - Somnolence [None]
  - Ill-defined disorder [None]
  - Influenza like illness [None]
  - Oedema peripheral [None]
  - Anxiety [None]
  - Eye pain [None]
  - Abdominal pain [None]
  - Presyncope [None]

NARRATIVE: CASE EVENT DATE: 20190705
